FAERS Safety Report 16394102 (Version 1)
Quarter: 2019Q3

REPORT INFORMATION
  Report Type: Spontaneous
  Country: US (occurrence: US)
  Receive Date: 20190603
  Receipt Date: 20190603
  Transmission Date: 20191004
  Serious: Yes (Other)
  Sender: FDA-Public Use
  Company Number: None

PATIENT
  Age: 50 Year
  Sex: Male
  Weight: 49 kg

DRUGS (7)
  1. LEVETIRACETAM 3000MG BID [Concomitant]
  2. RANITIDINE 150MG HS [Concomitant]
  3. TOPIRAMATE. [Suspect]
     Active Substance: TOPIRAMATE
     Indication: SEIZURE
     Route: 048
     Dates: start: 20170601, end: 20190522
  4. POTASSIUM CHLORIDE 20 MEQ BID [Concomitant]
  5. LACTULOSE 10G DAILY [Concomitant]
  6. OXCARBAZELPINE 1200MG TID [Concomitant]
  7. ZOLEDRONIC ACID 5MG IV ANNUALLY [Concomitant]

REACTIONS (7)
  - Nephrolithiasis [None]
  - Hypokalaemia [None]
  - Hyperchloraemia [None]
  - Decreased appetite [None]
  - Rhabdomyolysis [None]
  - Hypernatraemia [None]
  - Calculus bladder [None]

NARRATIVE: CASE EVENT DATE: 20190411
